FAERS Safety Report 9225323 (Version 1)
Quarter: 2013Q2

REPORT INFORMATION
  Report Type: Spontaneous
  Country: GB (occurrence: None)
  Receive Date: 20130409
  Receipt Date: 20130409
  Transmission Date: 20140414
  Serious: Yes (Hospitalization, Other)
  Sender: FDA-Public Use
  Company Number: E2B_00000703

PATIENT
  Age: 71 Year
  Sex: Female
  Weight: 57 kg

DRUGS (19)
  1. SIMVASTATIN [Suspect]
     Indication: PRODUCT USED FOR UNKNOWN INDICATION
     Dosage: UNKNOWN (UNKNOWN, UNKNOWN-
  2. DAPTOMYCIN [Suspect]
     Indication: INFECTION
     Dosage: UNKNOWN (350 MG, 1 IN 1 D), INTRAVENOUS
     Route: 042
     Dates: start: 20130306, end: 20130310
  3. ENOXAPARIN [Concomitant]
  4. VANCOMYCIN [Concomitant]
  5. GENTAMICIN [Concomitant]
  6. CHLORPHENAMINE [Concomitant]
  7. CODEINE PHOSPHATE+PARACETAMOL (CO-CODAMOL) [Concomitant]
  8. ONDANSETRON [Concomitant]
  9. BENDROFLUAZIDE [Concomitant]
  10. ASPIRIN [Concomitant]
  11. OMEPRAZOLE [Concomitant]
  12. RIFAMPICIN [Concomitant]
  13. PARACETAMOL [Concomitant]
  14. TRAMADOL [Concomitant]
  15. POTASSIUM CHLORIDE+ POTASSIUM BICARBONATE (SANDO-K) [Concomitant]
  16. CIPROFLOXACIN [Concomitant]
  17. CYCLIZINE [Concomitant]
  18. MORPHINE SULFATE [Concomitant]
  19. MOMETASONE FUROATE [Concomitant]

REACTIONS (4)
  - Tachycardia [None]
  - Heart rate irregular [None]
  - Atrial fibrillation [None]
  - Blood creatine phosphokinase increased [None]
